FAERS Safety Report 6854130-5 (Version None)
Quarter: 2010Q3

REPORT INFORMATION
  Report Type: 
  Country: None (occurrence: None)
  Receive Date: 20100717
  Receipt Date: 20080207
  Transmission Date: 20110219
  Serious: Yes (Other)
  Sender: FDA-Public Use
  Company Number: US-PFIZER INC-2007103315

PATIENT
  Sex: Female
  Weight: 62.8 kg

DRUGS (5)
  1. CHANTIX [Suspect]
     Indication: SMOKING CESSATION THERAPY
     Route: 048
     Dates: start: 20071119
  2. CHANTIX [Suspect]
     Indication: TOBACCO USER
  3. KLONOPIN [Concomitant]
     Indication: ANXIETY
  4. LORTAB [Concomitant]
  5. NEURONTIN [Concomitant]

REACTIONS (5)
  - CRYING [None]
  - FEELINGS OF WORTHLESSNESS [None]
  - HALLUCINATION [None]
  - NIGHTMARE [None]
  - SUICIDAL IDEATION [None]
